FAERS Safety Report 8557967-X (Version None)
Quarter: 2012Q3

REPORT INFORMATION
  Report Type: 
  Country: None (occurrence: None)
  Receive Date: 20120801
  Receipt Date: 20120723
  Transmission Date: 20120928
  Serious: Yes (Hospitalization)
  Sender: FDA-Public Use
  Company Number: US-ELI_LILLY_AND_COMPANY-US201206007068

PATIENT
  Sex: Female
  Weight: 84.354 kg

DRUGS (8)
  1. FORTEO [Suspect]
     Indication: OSTEOPOROSIS
     Dosage: 20 UG, QD
     Dates: start: 20110701
  2. AMLODIPINE [Concomitant]
     Dosage: 10 MG, QD
  3. HYDROCHLOROTH [Concomitant]
     Dosage: 25 MG, QD
  4. LOSARTAN POTASSIUM [Concomitant]
     Dosage: 10 MG, QD
  5. CALCIUM [Concomitant]
     Dosage: UNK
  6. LEXAPRO [Concomitant]
     Dosage: UNK
  7. MULTI-VITAMINS [Concomitant]
     Dosage: UNK
  8. METOPROLOL TARTRATE [Concomitant]
     Dosage: UNK

REACTIONS (6)
  - CARDIAC DISORDER [None]
  - FALL [None]
  - VERTIGO [None]
  - SYNCOPE [None]
  - BACK PAIN [None]
  - ARRHYTHMIA [None]
